FAERS Safety Report 24104046 (Version 3)
Quarter: 2024Q3

REPORT INFORMATION
  Report Type: Report from Study
  Country: JP (occurrence: JP)
  Receive Date: 20240717
  Receipt Date: 20240913
  Transmission Date: 20241016
  Serious: Yes (Disabling, Other)
  Sender: MERZ
  Company Number: JP-teijin-202401751_XEO_P_1

PATIENT
  Age: 79 Year
  Sex: Female

DRUGS (2)
  1. XEOMIN [Suspect]
     Active Substance: INCOBOTULINUMTOXINA
     Indication: Muscle spasticity
     Dosage: 200 025
     Route: 030
     Dates: start: 20240405, end: 2024
  2. XEOMIN [Suspect]
     Active Substance: INCOBOTULINUMTOXINA
     Dosage: 100 025
     Route: 030
     Dates: start: 20240105, end: 20240105

REACTIONS (1)
  - Muscular weakness [Recovered/Resolved with Sequelae]

NARRATIVE: CASE EVENT DATE: 20240405
